FAERS Safety Report 4277866-1 (Version None)
Quarter: 2004Q1

REPORT INFORMATION
  Report Type: 
  Country: None (occurrence: None)
  Receive Date: 20040123
  Receipt Date: 20031224
  Transmission Date: 20041129
  Serious: Yes (Other)
  Sender: FDA-Public Use
  Company Number: FR-BRISTOL-MYERS SQUIBB COMPANY-12467817

PATIENT
  Age: 46 Year
  Sex: Female
  Weight: 57 kg

DRUGS (5)
  1. ENDOXAN [Suspect]
     Indication: BREAST CANCER METASTATIC
     Route: 042
     Dates: start: 20031218, end: 20031218
  2. DOXORUBICIN HCL [Concomitant]
     Indication: BREAST CANCER METASTATIC
     Route: 042
     Dates: start: 20031218, end: 20031218
  3. SOLU-MEDROL [Concomitant]
     Indication: PREMEDICATION
     Route: 042
     Dates: start: 20031218, end: 20031218
  4. ONDANSETRON HCL [Concomitant]
     Indication: PREMEDICATION
     Route: 042
     Dates: start: 20001218, end: 20031218
  5. DURAGESIC [Concomitant]
     Route: 062

REACTIONS (4)
  - DYSGEUSIA [None]
  - HYPERSENSITIVITY [None]
  - VERTIGO [None]
  - VISUAL ACUITY REDUCED [None]
